FAERS Safety Report 5711382-2 (Version None)
Quarter: 2008Q2

REPORT INFORMATION
  Report Type: 
  Country: None (occurrence: None)
  Receive Date: 20080418
  Receipt Date: 20080418
  Transmission Date: 20081010
  Serious: Yes (Hospitalization)
  Sender: FDA-Public Use
  Company Number: None

PATIENT
  Sex: Female
  Weight: 67 kg

DRUGS (2)
  1. CARBOPLATIN [Suspect]
     Dosage: 430 MG
     Dates: start: 20080408, end: 20080408
  2. TAXOL [Suspect]
     Dosage: 290 MG
     Dates: end: 20080408

REACTIONS (2)
  - NAUSEA [None]
  - VOMITING [None]
